FAERS Safety Report 18786477 (Version 1)
Quarter: 2021Q1

REPORT INFORMATION
  Report Type: Spontaneous
  Country: CH (occurrence: CH)
  Receive Date: 20210126
  Receipt Date: 20210126
  Transmission Date: 20210419
  Serious: Yes (Death, Life-Threatening, Hospitalization, Other)
  Sender: FDA-Public Use
  Company Number: CH-TEVA-2021-CH-1871459

PATIENT
  Age: 80 Year
  Sex: Female

DRUGS (17)
  1. METFORMIN [Suspect]
     Active Substance: METFORMIN HYDROCHLORIDE
     Route: 048
     Dates: start: 20201207, end: 20201217
  2. JANUVIA [Suspect]
     Active Substance: SITAGLIPTIN PHOSPHATE
     Route: 048
     Dates: start: 20201215, end: 20201217
  3. DIPIPERON [Concomitant]
     Active Substance: PIPAMPERONE
     Route: 048
  4. NAPROXEN MEPHA [Suspect]
     Active Substance: NAPROXEN
     Route: 048
     Dates: end: 20201217
  5. QUETIAPIN [Concomitant]
     Active Substance: QUETIAPINE
     Route: 048
  6. LANTUS [Concomitant]
     Active Substance: INSULIN GLARGINE
     Dosage: AS NECESSARY
     Route: 058
     Dates: start: 20201209, end: 20201213
  7. XARELTO [Suspect]
     Active Substance: RIVAROXABAN
     Route: 048
     Dates: start: 20201212, end: 20201218
  8. TARGIN [Concomitant]
     Active Substance: NALOXONE HYDROCHLORIDE\OXYCODONE HYDROCHLORIDE
     Route: 048
  9. PANTOPRAZOL [Concomitant]
     Active Substance: PANTOPRAZOLE SODIUM
     Route: 048
  10. PREGABALIN. [Concomitant]
     Active Substance: PREGABALIN
     Route: 048
  11. DAFALGAN [Suspect]
     Active Substance: ACETAMINOPHEN
     Route: 048
  12. NOVORAPID [Concomitant]
     Active Substance: INSULIN ASPART
     Dosage: AS NECESSARY
     Route: 058
  13. NOVALGIN [Concomitant]
     Route: 048
  14. LAXOBERON [Concomitant]
     Active Substance: SODIUM PICOSULFATE
     Route: 048
  15. MOVICOL [Concomitant]
     Active Substance: POLYETHYLENE GLYCOL 3350\POTASSIUM CHLORIDE\SODIUM BICARBONATE\SODIUM CHLORIDE
     Route: 048
  16. JARDIANCE [Suspect]
     Active Substance: EMPAGLIFLOZIN
     Route: 048
     Dates: start: 20201208, end: 20201217
  17. TRAMAL [Concomitant]
     Active Substance: TRAMADOL
     Route: 048

REACTIONS (3)
  - Haematemesis [Recovered/Resolved]
  - Ketoacidosis [Recovered/Resolved]
  - Melaena [Recovered/Resolved]

NARRATIVE: CASE EVENT DATE: 20201217
